FAERS Safety Report 7227767-1 (Version None)
Quarter: 2011Q1

REPORT INFORMATION
  Report Type: 
  Country: None (occurrence: None)
  Receive Date: 20110114
  Receipt Date: 20110112
  Transmission Date: 20110831
  Serious: Yes (Other)
  Sender: FDA-Public Use
  Company Number: US-PFIZER INC-US-WYE-H14188410

PATIENT
  Sex: Female
  Weight: 59 kg

DRUGS (3)
  1. EFFEXOR XR [Suspect]
     Indication: DEPRESSION
     Dosage: 225 MG, 1X/DAY
     Route: 048
  2. EFFEXOR XR [Suspect]
     Dosage: 75MG DAILY
     Dates: start: 20000101, end: 20090101
  3. AMBIEN [Concomitant]

REACTIONS (3)
  - MANIA [None]
  - WEIGHT INCREASED [None]
  - BIPOLAR DISORDER [None]
